FAERS Safety Report 5878976-5 (Version None)
Quarter: 2008Q3

REPORT INFORMATION
  Report Type: 
  Country: None (occurrence: None)
  Receive Date: 20080912
  Receipt Date: 20080908
  Transmission Date: 20090109
  Serious: Yes (Death, Other)
  Sender: FDA-Public Use
  Company Number: US-BRISTOL-MYERS SQUIBB COMPANY-14327712

PATIENT
  Age: 61 Year
  Sex: Male

DRUGS (6)
  1. CEFEPIME [Suspect]
     Indication: ESCHERICHIA INFECTION
  2. TRIMETHOPRIM + SULFAMETHOXAZOLE [Suspect]
     Indication: PROPHYLAXIS
  3. MICAFUNGIN SODIUM [Suspect]
     Indication: ANTIFUNGAL PROPHYLAXIS
     Route: 042
  4. TACROLIMUS [Suspect]
  5. MYCOPHENOLATE MOFETIL [Suspect]
  6. PREDNISONE TAB [Suspect]

REACTIONS (6)
  - ASCITES [None]
  - CATHETER RELATED INFECTION [None]
  - ESCHERICHIA SEPSIS [None]
  - MULTI-ORGAN FAILURE [None]
  - PLEURAL EFFUSION [None]
  - SEPSIS [None]
